FAERS Safety Report 25665839 (Version 1)
Quarter: 2025Q3

REPORT INFORMATION
  Report Type: Spontaneous
  Country: AU (occurrence: AU)
  Receive Date: 20250811
  Receipt Date: 20250811
  Transmission Date: 20251020
  Serious: Yes (Hospitalization, Other)
  Sender: MYLAN
  Company Number: AU-MYLANLABS-2025M1064810

PATIENT
  Age: 84 Year
  Sex: Male

DRUGS (16)
  1. NITROGLYCERIN [Suspect]
     Active Substance: NITROGLYCERIN
     Indication: Myocardial ischaemia
  2. NITROGLYCERIN [Suspect]
     Active Substance: NITROGLYCERIN
     Route: 065
  3. NITROGLYCERIN [Suspect]
     Active Substance: NITROGLYCERIN
     Route: 065
  4. NITROGLYCERIN [Suspect]
     Active Substance: NITROGLYCERIN
  5. BISOPROLOL [Suspect]
     Active Substance: BISOPROLOL
     Indication: Myocardial ischaemia
  6. BISOPROLOL [Suspect]
     Active Substance: BISOPROLOL
     Indication: Hypertension
     Route: 065
  7. BISOPROLOL [Suspect]
     Active Substance: BISOPROLOL
     Route: 065
  8. BISOPROLOL [Suspect]
     Active Substance: BISOPROLOL
  9. ISOSORBIDE MONONITRATE [Suspect]
     Active Substance: ISOSORBIDE MONONITRATE
     Indication: Myocardial ischaemia
  10. ISOSORBIDE MONONITRATE [Suspect]
     Active Substance: ISOSORBIDE MONONITRATE
     Route: 065
  11. ISOSORBIDE MONONITRATE [Suspect]
     Active Substance: ISOSORBIDE MONONITRATE
     Route: 065
  12. ISOSORBIDE MONONITRATE [Suspect]
     Active Substance: ISOSORBIDE MONONITRATE
  13. PERHEXILINE [Suspect]
     Active Substance: PERHEXILINE
     Indication: Myocardial ischaemia
     Dosage: 50 MILLIGRAM, BID (50MG TWICE DAILY)
     Dates: start: 202103
  14. PERHEXILINE [Suspect]
     Active Substance: PERHEXILINE
     Dosage: 50 MILLIGRAM, BID (50MG TWICE DAILY)
     Route: 065
     Dates: start: 202103
  15. PERHEXILINE [Suspect]
     Active Substance: PERHEXILINE
     Dosage: 50 MILLIGRAM, BID (50MG TWICE DAILY)
     Route: 065
     Dates: start: 202103
  16. PERHEXILINE [Suspect]
     Active Substance: PERHEXILINE
     Dosage: 50 MILLIGRAM, BID (50MG TWICE DAILY)
     Dates: start: 202103

REACTIONS (3)
  - Syncope [Unknown]
  - Hypotension [Unknown]
  - Gamma-glutamyltransferase increased [Unknown]
